FAERS Safety Report 4759798-5 (Version None)
Quarter: 2005Q3

REPORT INFORMATION
  Report Type: 
  Country: None (occurrence: None)
  Receive Date: 20050831
  Receipt Date: 20050831
  Transmission Date: 20060218
  Serious: Yes (Life-Threatening, Hospitalization)
  Sender: FDA-Public Use
  Company Number: None

PATIENT
  Age: 61 Year
  Sex: Female
  Weight: 92.0802 kg

DRUGS (1)
  1. TRILEPTAL [Suspect]
     Dosage: 2400 MG DAILY ORALLY
     Route: 048
     Dates: start: 20030701, end: 20050702

REACTIONS (6)
  - BLOOD SODIUM DECREASED [None]
  - MUCOUS MEMBRANE DISORDER [None]
  - RASH [None]
  - SKIN EXFOLIATION [None]
  - SKIN REACTION [None]
  - URTICARIA [None]
